FAERS Safety Report 25450088 (Version 1)
Quarter: 2025Q2

REPORT INFORMATION
  Report Type: Spontaneous
  Country: US (occurrence: US)
  Receive Date: 20250618
  Receipt Date: 20250618
  Transmission Date: 20250717
  Serious: No
  Sender: ROCHE
  Company Number: US-ROCHE-10000309346

PATIENT
  Sex: Male

DRUGS (1)
  1. ZELBORAF [Suspect]
     Active Substance: VEMURAFENIB
     Indication: Prostate cancer
     Dosage: DOSE/FREQUENCY/ROUTE ZELBORAF, TAKE 3 TABLETS BY MOUTH 2 TIMES A DAY FOR 28 DAYS.
     Route: 048
     Dates: start: 202406

REACTIONS (4)
  - Dizziness [Unknown]
  - Feeling abnormal [Unknown]
  - Muscular weakness [Unknown]
  - Off label use [Unknown]
